FAERS Safety Report 4456231-8 (Version None)
Quarter: 2004Q3

REPORT INFORMATION
  Report Type: 
  Country: None (occurrence: None)
  Receive Date: 20040920
  Receipt Date: 20040910
  Transmission Date: 20050211
  Serious: Yes (Hospitalization)
  Sender: FDA-Public Use
  Company Number: 2004-07-1069

PATIENT
  Age: 24 Year
  Sex: Female
  Weight: 50 kg

DRUGS (1)
  1. CELESTAMINE TAB [Suspect]
     Indication: DERMATITIS ATOPIC
     Dosage: 2-3 TABS QD ORAL
     Route: 048
     Dates: end: 20040601

REACTIONS (2)
  - MANIA [None]
  - PSYCHOTIC DISORDER [None]
